FAERS Safety Report 5486525-9 (Version None)
Quarter: 2007Q3

REPORT INFORMATION
  Report Type: 
  Country: None (occurrence: None)
  Receive Date: 20070919
  Receipt Date: 20070528
  Transmission Date: 20080115
  Serious: No
  Sender: FDA-Public Use
  Company Number: 2007RL000254

PATIENT

DRUGS (5)
  1. OMACOR [Suspect]
     Indication: HYPERTRIGLYCERIDAEMIA
     Dosage: 2 GM;BID;PO
     Route: 048
  2. STATIN / 00084401/ [Suspect]
     Indication: DRUG USE FOR UNKNOWN INDICATION
  3. NIACIN [Suspect]
     Indication: DRUG USE FOR UNKNOWN INDICATION
  4. HYPERTENSIVE MEDICATION [Suspect]
     Indication: HYPERTENSION
  5. TZD [Suspect]
     Indication: DRUG USE FOR UNKNOWN INDICATION

REACTIONS (1)
  - RASH [None]
